FAERS Safety Report 7800488-X (Version None)
Quarter: 2011Q4

REPORT INFORMATION
  Report Type: 
  Country: None (occurrence: None)
  Receive Date: 20111006
  Receipt Date: 20110926
  Transmission Date: 20120403
  Serious: Yes (Hospitalization)
  Sender: FDA-Public Use
  Company Number: US-BAYER-2011-020212

PATIENT
  Age: 37 Year
  Sex: Female
  Weight: 90.703 kg

DRUGS (4)
  1. PREDNISONE [Concomitant]
     Indication: ARTHRALGIA
     Dosage: 20 MG, UNK
     Route: 048
     Dates: start: 20061025, end: 20061101
  2. YASMIN [Suspect]
     Indication: PREMENSTRUAL SYNDROME
     Dosage: UNK
     Dates: start: 20060801, end: 20061101
  3. NAPROXEN [Concomitant]
     Indication: PAIN IN EXTREMITY
     Dosage: 100 MG, UNK
     Route: 048
     Dates: start: 20061025, end: 20061101
  4. LEVAQUIN [Concomitant]
     Dosage: UNK
     Dates: start: 20060906

REACTIONS (6)
  - PAIN [None]
  - EMOTIONAL DISTRESS [None]
  - PULMONARY EMBOLISM [None]
  - INJURY [None]
  - DEEP VEIN THROMBOSIS [None]
  - ANXIETY [None]
